FAERS Safety Report 7505752-X (Version None)
Quarter: 2011Q2

REPORT INFORMATION
  Report Type: 
  Country: None (occurrence: None)
  Receive Date: 20110526
  Receipt Date: 20110524
  Transmission Date: 20111010
  Serious: Yes (Hospitalization)
  Sender: FDA-Public Use
  Company Number: BR-ABBOTT-10P-020-0673120-00

PATIENT
  Sex: Female
  Weight: 68 kg

DRUGS (10)
  1. PREDNISONE [Concomitant]
     Indication: STEROID THERAPY
     Route: 048
     Dates: start: 20090101
  2. CALCIUM BICARBONATE [Concomitant]
     Indication: BONE DISORDER
     Route: 048
  3. TOPAMAX [Concomitant]
     Indication: DEPRESSION
     Route: 048
  4. METHOTREXATE [Concomitant]
     Indication: RHEUMATOID ARTHRITIS
     Route: 048
  5. DICLOFENAC SODIUM [Concomitant]
     Indication: PAIN
     Dosage: 3 EVERY 24 HOURS AS NECESSARY
     Route: 048
     Dates: start: 20090101
  6. CLONAZEPAM [Concomitant]
     Indication: NERVOUS SYSTEM DISORDER
     Route: 048
  7. OMEPRAZOLE [Concomitant]
     Indication: GASTRIC DISORDER
     Route: 048
  8. SIMVASTATIN [Concomitant]
     Indication: BLOOD CHOLESTEROL INCREASED
     Route: 048
  9. FOLIC ACID [Concomitant]
     Indication: VITAMIN SUPPLEMENTATION
     Route: 048
  10. HUMIRA [Suspect]
     Indication: RHEUMATOID ARTHRITIS
     Route: 058

REACTIONS (5)
  - HYPERTENSION [None]
  - DECREASED APPETITE [None]
  - WEIGHT DECREASED [None]
  - DEPRESSION [None]
  - EATING DISORDER [None]
